FAERS Safety Report 4686467-2 (Version None)
Quarter: 2005Q2

REPORT INFORMATION
  Report Type: 
  Country: None (occurrence: None)
  Receive Date: 20050607
  Receipt Date: 20050527
  Transmission Date: 20051028
  Serious: Yes (Hospitalization)
  Sender: FDA-Public Use
  Company Number: 2005AL002058

PATIENT
  Sex: Female

DRUGS (4)
  1. KADIAN [Suspect]
     Indication: NECK PAIN
     Dosage: 100 MG; BID; PO
     Route: 048
     Dates: start: 20041101
  2. PREDNISONE TAB [Concomitant]
  3. DAPSONE [Concomitant]
  4. PROZAC [Concomitant]

REACTIONS (4)
  - APPENDICITIS [None]
  - NAUSEA [None]
  - OVARIAN CYST [None]
  - VOMITING [None]
